FAERS Safety Report 6048928-3 (Version None)
Quarter: 2009Q1

REPORT INFORMATION
  Report Type: 
  Country: None (occurrence: None)
  Receive Date: 20090123
  Receipt Date: 20090120
  Transmission Date: 20090719
  Serious: Yes (Hospitalization)
  Sender: FDA-Public Use
  Company Number: CH-BRISTOL-MYERS SQUIBB COMPANY-14477269

PATIENT
  Age: 67 Year
  Sex: Female

DRUGS (6)
  1. TRITTICO [Interacting]
     Indication: DEPRESSION
     Dosage: STRENGTH = 100MG  FORMULATION = TABLETS
     Route: 048
     Dates: end: 20081130
  2. ZYVOXID [Interacting]
     Indication: MENINGITIS ENTEROCOCCAL
     Route: 042
     Dates: start: 20081122, end: 20081130
  3. URBANYL [Suspect]
     Route: 048
  4. MERONEM [Concomitant]
  5. STILNOX [Concomitant]
  6. SERESTA [Concomitant]

REACTIONS (4)
  - COMA [None]
  - DRUG INTERACTION [None]
  - HYPOTENSION [None]
  - SEROTONIN SYNDROME [None]
